FAERS Safety Report 18314514 (Version 1)
Quarter: 2020Q3

REPORT INFORMATION
  Report Type: Spontaneous
  Country: US (occurrence: US)
  Receive Date: 20200925
  Receipt Date: 20200925
  Transmission Date: 20201103
  Serious: No
  Sender: FDA-Public Use
  Company Number: US-TEVA-2020-US-1831371

PATIENT
  Age: 83 Year
  Sex: Female

DRUGS (2)
  1. ALPRAZOLAM TEVA [Suspect]
     Active Substance: ALPRAZOLAM
     Route: 065
     Dates: start: 20200903, end: 20200917
  2. ALPRAZOLAM TEVA [Suspect]
     Active Substance: ALPRAZOLAM
     Route: 065
     Dates: start: 2017

REACTIONS (3)
  - Dizziness [Recovering/Resolving]
  - Product substitution issue [Unknown]
  - Headache [Recovering/Resolving]
